FAERS Safety Report 12249035 (Version 1)
Quarter: 2016Q2

REPORT INFORMATION
  Report Type: Spontaneous
  Country: US (occurrence: None)
  Receive Date: 20160407
  Receipt Date: 20160407
  Transmission Date: 20160815
  Serious: Yes (Other)
  Sender: FDA-Public Use
  Company Number: None

PATIENT
  Age: 81 Year
  Sex: Male
  Weight: 80.74 kg

DRUGS (11)
  1. NAMENDA [Concomitant]
     Active Substance: MEMANTINE HYDROCHLORIDE
  2. SODIUM BICARB [Concomitant]
  3. PANTOPRAZOLE [Concomitant]
     Active Substance: PANTOPRAZOLE SODIUM
  4. PROTOPIN OINTMENT [Concomitant]
  5. RIVASTIGMINE TRANSDERMAL SYSTEM [Suspect]
     Active Substance: RIVASTIGMINE
     Indication: DEMENTIA WITH LEWY BODIES
     Dosage: 1 PATCH DAILY ON SKIN
     Route: 062
     Dates: start: 20151215, end: 20160125
  6. VITAMIN C [Concomitant]
     Active Substance: ASCORBIC ACID
  7. EXELON PATCH [Concomitant]
     Active Substance: RIVASTIGMINE
  8. FLOMAX [Concomitant]
     Active Substance: TAMSULOSIN HYDROCHLORIDE
  9. VITAMIN D3 [Concomitant]
     Active Substance: CHOLECALCIFEROL
  10. METOPROLOL SUCC [Concomitant]
     Active Substance: METOPROLOL SUCCINATE
  11. LEVOTHYROXIN [Concomitant]
     Active Substance: LEVOTHYROXINE

REACTIONS (8)
  - Application site pain [None]
  - Sleep disorder [None]
  - Mental disorder [None]
  - Hallucination [None]
  - Speech disorder [None]
  - Product formulation issue [None]
  - Product substitution issue [None]
  - Application site rash [None]

NARRATIVE: CASE EVENT DATE: 20151215
